FAERS Safety Report 5363829-1 (Version None)
Quarter: 2007Q2

REPORT INFORMATION
  Report Type: 
  Country: None (occurrence: None)
  Receive Date: 20070620
  Receipt Date: 20070613
  Transmission Date: 20071010
  Serious: Yes (Hospitalization)
  Sender: FDA-Public Use
  Company Number: US-SANOFI-SYNTHELABO-F01200700629

PATIENT
  Sex: Female

DRUGS (8)
  1. CYANOCOBALAMIN [Concomitant]
  2. FUROSEMIDE [Concomitant]
  3. HYDROCODONE BITARTRATE [Concomitant]
  4. POTASSIUM ACETATE [Concomitant]
  5. METOPROLOL SUCCINATE [Concomitant]
  6. BEVACIZUMAB [Suspect]
     Dosage: 565 MG
     Route: 042
     Dates: start: 20070416, end: 20070416
  7. CAPECITABINE [Suspect]
     Dosage: 3500 MG
     Route: 048
     Dates: start: 20070416
  8. OXALIPLATIN [Suspect]
     Indication: COLORECTAL CANCER METASTATIC
     Dosage: 195 MG
     Route: 042
     Dates: start: 20070416, end: 20070416

REACTIONS (1)
  - ACUTE PULMONARY OEDEMA [None]
